FAERS Safety Report 7594841-X (Version None)
Quarter: 2011Q3

REPORT INFORMATION
  Report Type: 
  Country: None (occurrence: None)
  Receive Date: 20110707
  Receipt Date: 20110624
  Transmission Date: 20111222
  Serious: Yes (Hospitalization, Other)
  Sender: FDA-Public Use
  Company Number: US-ASTRAZENECA-2011SE38476

PATIENT
  Age: 42 Year
  Sex: Female

DRUGS (3)
  1. BELLADONNA [Concomitant]
  2. NEXIUM [Suspect]
     Route: 048
  3. CARAFATE [Concomitant]

REACTIONS (7)
  - BIOPSY HEART [None]
  - GASTRIC DISORDER [None]
  - BIOPSY STOMACH [None]
  - GASTRIC POLYPS [None]
  - GASTRITIS [None]
  - PANCREATITIS CHRONIC [None]
  - IMPAIRED GASTRIC EMPTYING [None]
